FAERS Safety Report 6933771-0 (Version None)
Quarter: 2010Q3

REPORT INFORMATION
  Report Type: 
  Country: None (occurrence: None)
  Receive Date: 20100820
  Receipt Date: 20100811
  Transmission Date: 20110219
  Serious: Yes (Hospitalization)
  Sender: FDA-Public Use
  Company Number: US-PFIZER INC-2009195451

PATIENT
  Sex: Female
  Weight: 58.957 kg

DRUGS (3)
  1. GEODON [Suspect]
     Indication: SCHIZOAFFECTIVE DISORDER BIPOLAR TYPE
     Dosage: 60 MG, UNK
     Route: 048
  2. GEODON [Suspect]
     Dosage: 80 MG, 1X/DAY
     Route: 048
  3. LAMICTAL [Suspect]
     Indication: SCHIZOAFFECTIVE DISORDER BIPOLAR TYPE
     Dosage: 25 MG, 1X/DAY
     Route: 048

REACTIONS (4)
  - ANXIETY [None]
  - CIRCUMSTANCE OR INFORMATION CAPABLE OF LEADING TO MEDICATION ERROR [None]
  - SOMNOLENCE [None]
  - STRESS [None]
